FAERS Safety Report 9015721 (Version 1)
Quarter: 2013Q1

REPORT INFORMATION
  Report Type: Spontaneous
  Country: TR (occurrence: TR)
  Receive Date: 20130116
  Receipt Date: 20130116
  Transmission Date: 20140127
  Serious: Yes (Hospitalization)
  Sender: FDA-Public Use
  Company Number: TR-ROCHE-1179355

PATIENT
  Age: 54 Year
  Sex: Female
  Weight: 95 kg

DRUGS (4)
  1. XOLAIR [Suspect]
     Indication: ASTHMA
     Route: 058
     Dates: start: 20120419
  2. SERETIDE [Concomitant]
  3. LANTUS [Concomitant]
     Route: 065
  4. THYROMAZOL [Concomitant]
     Route: 065

REACTIONS (4)
  - Speech disorder [Recovered/Resolved]
  - Facial asymmetry [Recovered/Resolved]
  - Thrombocytosis [Unknown]
  - Haemoglobin decreased [Unknown]
